FAERS Safety Report 11170383 (Version 4)
Quarter: 2016Q1

REPORT INFORMATION
  Report Type: Spontaneous
  Country: US (occurrence: US)
  Receive Date: 20150608
  Receipt Date: 20160122
  Transmission Date: 20160525
  Serious: Yes (Hospitalization, Other)
  Sender: FDA-Public Use
  Company Number: US-BAYER-2015-296581

PATIENT
  Age: 22 Year
  Sex: Female
  Weight: 111.11 kg

DRUGS (11)
  1. IBUPROFEN. [Concomitant]
     Active Substance: IBUPROFEN
     Indication: TENDONITIS
     Dosage: 600 MG, Q 6 HOURS
     Route: 048
     Dates: start: 20130515
  2. BACLOFEN. [Concomitant]
     Active Substance: BACLOFEN
     Dosage: 10 MG, 1-2 TS BID
     Route: 048
     Dates: start: 20130510
  3. AMITRIPTYLINE [Concomitant]
     Active Substance: AMITRIPTYLINE
     Dosage: 25 MG, START TAKING 1 TABLET) AT NIGHT, INCREASE Q WEEK AS TOLERATED UP TO 3 TS HS
     Route: 048
     Dates: start: 20130510
  4. AMOXICILLIN. [Concomitant]
     Active Substance: AMOXICILLIN
     Dosage: 500 MG, TID
     Route: 048
     Dates: start: 20130601
  5. MIRENA [Suspect]
     Active Substance: LEVONORGESTREL
     Indication: CONTRACEPTION
     Dosage: 20 MCG/24HR, CONT
     Route: 015
     Dates: start: 20100409, end: 20130715
  6. NAPROXEN. [Concomitant]
     Active Substance: NAPROXEN
     Dosage: 500 MG, Q12 H PRN
     Route: 048
     Dates: start: 20130404
  7. IBUPROFEN. [Concomitant]
     Active Substance: IBUPROFEN
     Indication: PAIN
     Dosage: 400 MG, Q 4-6 H PRN
     Dates: start: 20130601
  8. OXYCODONE/APAP [Concomitant]
     Active Substance: ACETAMINOPHEN\OXYCODONE HYDROCHLORIDE
     Dosage: 5-325 MG, 1-2 TAB BID
     Route: 048
     Dates: start: 20130605, end: 20130708
  9. NUVARING [Concomitant]
     Active Substance: ETHINYL ESTRADIOL\ETONOGESTREL
     Dosage: UNK
     Dates: start: 201305
  10. TOPAMAX [Concomitant]
     Active Substance: TOPIRAMATE
  11. METHADONE [Concomitant]
     Active Substance: METHADONE HYDROCHLORIDE
     Dosage: 10 MG, HS
     Route: 048
     Dates: start: 20130701

REACTIONS (10)
  - Pain [None]
  - Headache [None]
  - General physical health deterioration [None]
  - Back pain [None]
  - Medical device discomfort [None]
  - Procedural pain [None]
  - Device dislocation [None]
  - Device dislocation [None]
  - Injury [None]
  - Pelvic inflammatory disease [None]

NARRATIVE: CASE EVENT DATE: 20110329
